FAERS Safety Report 11943214 (Version 1)
Quarter: 2016Q1

REPORT INFORMATION
  Report Type: Spontaneous
  Country: US (occurrence: US)
  Receive Date: 20160125
  Receipt Date: 20160125
  Transmission Date: 20160526
  Serious: No
  Sender: FDA-Public Use
  Company Number: US-UNITED THERAPEUTICS-UNT-2015-011094

PATIENT
  Sex: Female
  Weight: 82.99 kg

DRUGS (3)
  1. LETAIRIS [Suspect]
     Active Substance: AMBRISENTAN
     Indication: PRODUCT USED FOR UNKNOWN INDICATION
     Dosage: UNK
     Route: 065
  2. REMODULIN [Suspect]
     Active Substance: TREPROSTINIL
     Dosage: 0.021 ?G/KG/MIN, CONTINUING
     Route: 041
     Dates: start: 20150728
  3. REMODULIN [Suspect]
     Active Substance: TREPROSTINIL
     Indication: PULMONARY HYPERTENSION
     Dosage: 0.015 ?G/KG/MIN, CONTINUING
     Route: 041
     Dates: start: 20150728

REACTIONS (4)
  - Dyspnoea [Unknown]
  - Alopecia [Unknown]
  - Nasal congestion [Unknown]
  - Blood viscosity increased [Unknown]

NARRATIVE: CASE EVENT DATE: 2015
